FAERS Safety Report 5264940-6 (Version None)
Quarter: 2007Q1

REPORT INFORMATION
  Report Type: 
  Country: None (occurrence: None)
  Receive Date: 20070314
  Receipt Date: 20070309
  Transmission Date: 20070707
  Serious: Yes (Hospitalization)
  Sender: FDA-Public Use
  Company Number: FR-AVENTIS-200611331FR

PATIENT
  Age: 53 Year
  Sex: Female

DRUGS (1)
  1. BIRODOGYL [Suspect]
     Indication: DENTAL CARE
     Route: 048
     Dates: start: 20060203, end: 20060210

REACTIONS (1)
  - HAEMOLYTIC ANAEMIA [None]
